FAERS Safety Report 25896636 (Version 2)
Quarter: 2025Q4

REPORT INFORMATION
  Report Type: Spontaneous
  Country: CN (occurrence: CN)
  Receive Date: 20251008
  Receipt Date: 20251016
  Transmission Date: 20260118
  Serious: Yes (Other)
  Sender: INCYTE
  Company Number: CN-002147023-NVSC2025CN152950

PATIENT
  Age: 61 Year

DRUGS (7)
  1. RUXOLITINIB [Suspect]
     Active Substance: RUXOLITINIB
     Indication: Myelofibrosis
     Dosage: 20 MG, BID
     Route: 065
  2. OMACETAXINE MEPESUCCINATE [Suspect]
     Active Substance: OMACETAXINE MEPESUCCINATE
     Indication: Acute myeloid leukaemia
     Dosage: AS A PART OF HA REGIMEN
     Route: 065
  3. CYTARABINE [Suspect]
     Active Substance: CYTARABINE
     Indication: Acute myeloid leukaemia
     Dosage: AS A PART OF HA REGIMEN
     Route: 065
  4. CYTARABINE [Suspect]
     Active Substance: CYTARABINE
     Indication: Myeloproliferative neoplasm
     Dosage: AS A PART OF D-HA REGIMEN
     Route: 065
  5. HYDROXYUREA [Suspect]
     Active Substance: HYDROXYUREA
     Indication: Myelofibrosis
     Dosage: UNK
     Route: 065
  6. DECITABINE [Suspect]
     Active Substance: DECITABINE
     Indication: Acute myeloid leukaemia
     Dosage: AS A PART OF D-HA REGIMEN
     Route: 065
  7. DECITABINE [Suspect]
     Active Substance: DECITABINE
     Indication: Myeloproliferative neoplasm

REACTIONS (3)
  - Myelofibrosis [Unknown]
  - Transformation to acute myeloid leukaemia [Unknown]
  - Treatment failure [Unknown]
